FAERS Safety Report 10405000 (Version 8)
Quarter: 2014Q3

REPORT INFORMATION
  Report Type: Report from Study
  Country: DE (occurrence: DE)
  Receive Date: 20140825
  Receipt Date: 20140909
  Transmission Date: 20150326
  Serious: Yes (Hospitalization)
  Sender: FDA-Public Use
  Company Number: DE-ROCHE-1442427

PATIENT
  Age: 60 Year
  Sex: Female
  Weight: 67 kg

DRUGS (15)
  1. ARIXTRA [Concomitant]
     Active Substance: FONDAPARINUX SODIUM
     Indication: THROMBOPHLEBITIS SUPERFICIAL
     Route: 058
     Dates: start: 20140612
  2. BENDAMUSTINE [Suspect]
     Active Substance: BENDAMUSTINE
     Indication: CHRONIC LYMPHOCYTIC LEUKAEMIA
     Dosage: CYCLE 1 DAY 1 (C1D1)
     Route: 042
     Dates: start: 20140724, end: 20140724
  3. TAVEGIL [Concomitant]
     Active Substance: CLEMASTINE FUMARATE
     Dosage: SINGLE DOSE
     Route: 042
     Dates: start: 20140724, end: 20140724
  4. BENDAMUSTINE [Suspect]
     Active Substance: BENDAMUSTINE
     Dosage: CYCLE 1 DAY 2 (C1D2)
     Route: 042
     Dates: start: 20140725
  5. GRANISETRON [Concomitant]
     Active Substance: GRANISETRON
     Indication: PROPHYLAXIS
     Route: 042
     Dates: start: 20140724
  6. PARACETAMOL [Concomitant]
     Active Substance: ACETAMINOPHEN
     Indication: PROPHYLAXIS
     Route: 048
     Dates: start: 20140724
  7. CLEMASTIN [Concomitant]
     Active Substance: CLEMASTINE
     Indication: PROPHYLAXIS
     Route: 042
     Dates: start: 20140724
  8. DEXAMETHASONE. [Concomitant]
     Active Substance: DEXAMETHASONE
     Indication: PROPHYLAXIS
     Route: 048
     Dates: start: 20140723, end: 20140724
  9. OBINUTUZUMAB [Suspect]
     Active Substance: OBINUTUZUMAB
     Dosage: CYCLE 1 DAY 2 (C1D2); DATE OF LAST DOSE PRIOR TO SAE: 25/JUL/2014
     Route: 042
     Dates: start: 20140725, end: 20140731
  10. OBINUTUZUMAB [Suspect]
     Active Substance: OBINUTUZUMAB
     Route: 042
     Dates: start: 20140807
  11. DEXAMETHASONE. [Concomitant]
     Active Substance: DEXAMETHASONE
     Route: 042
     Dates: start: 20140724
  12. PREDNISOLONE. [Concomitant]
     Active Substance: PREDNISOLONE
     Indication: PROPHYLAXIS
     Route: 042
     Dates: start: 20140724, end: 20140724
  13. RANITIC [Concomitant]
     Active Substance: RANITIDINE HYDROCHLORIDE
     Dosage: SINGLE DOSE
     Route: 042
     Dates: start: 20140724, end: 20140724
  14. OBINUTUZUMAB [Suspect]
     Active Substance: OBINUTUZUMAB
     Indication: CHRONIC LYMPHOCYTIC LEUKAEMIA
     Dosage: CYCLE 1 DAY 1 (C1D1); ON 24/JUL/2014 IT WAS INTERRUPTED DUE TO INFUSION RELATED REACTION
     Route: 042
     Dates: start: 20140724, end: 20140724
  15. VERGENTAN [Concomitant]
     Dosage: SINGLE DOSE
     Route: 042
     Dates: start: 20140724, end: 20140724

REACTIONS (2)
  - Hyperventilation [Recovered/Resolved]
  - Respiratory alkalosis [Recovered/Resolved]

NARRATIVE: CASE EVENT DATE: 20140727
